FAERS Safety Report 9411061 (Version 2)
Quarter: 2013Q3

REPORT INFORMATION
  Report Type: Report from Study
  Country: CU (occurrence: CU)
  Receive Date: 20130720
  Receipt Date: 20130730
  Transmission Date: 20140515
  Serious: Yes (Hospitalization)
  Sender: FDA-Public Use
  Company Number: CU-ASTRAZENECA-2013SE54398

PATIENT
  Age: 52 Year
  Sex: Male

DRUGS (3)
  1. OMEPRAZOL [Suspect]
     Indication: ABDOMINAL PAIN UPPER
     Route: 048
  2. OMEPRAZOL [Interacting]
     Indication: DYSPEPSIA
     Route: 048
  3. CLOPIDOGREL [Interacting]

REACTIONS (2)
  - Drug interaction [Unknown]
  - Thrombosis in device [Recovered/Resolved]
